FAERS Safety Report 21251562 (Version 3)
Quarter: 2022Q4

REPORT INFORMATION
  Report Type: Spontaneous
  Country: US (occurrence: US)
  Receive Date: 20220825
  Receipt Date: 20221008
  Transmission Date: 20230113
  Serious: No
  Sender: FDA-Public Use
  Company Number: US-BRISTOL-MYERS SQUIBB COMPANY-2022-094987

PATIENT
  Age: 71 Year
  Sex: Male

DRUGS (1)
  1. REVLIMID [Suspect]
     Active Substance: LENALIDOMIDE
     Indication: Plasma cell myeloma
     Dosage: FREQUENCY- TAKE 1 CAPSULE BY MOUTH WHOLE WITH WATER ,WITH OR WITHOUT FOOD AT SAME TIME EACH DAY 21 D
     Route: 048
     Dates: start: 20220808

REACTIONS (5)
  - Dry skin [Not Recovered/Not Resolved]
  - Full blood count decreased [Unknown]
  - Pruritus [Unknown]
  - Asthenia [Unknown]
  - Visual impairment [Not Recovered/Not Resolved]
